FAERS Safety Report 19519041 (Version 1)
Quarter: 2021Q3

REPORT INFORMATION
  Report Type: Spontaneous
  Country: US (occurrence: US)
  Receive Date: 20210710
  Receipt Date: 20210710
  Transmission Date: 20211014
  Serious: No
  Sender: FDA-Public Use
  Company Number: None

PATIENT
  Age: 82 Year
  Sex: Female
  Weight: 79.38 kg

DRUGS (6)
  1. LOSARTEN [Concomitant]
     Active Substance: LOSARTAN
  2. ALLOPURINOL. [Concomitant]
     Active Substance: ALLOPURINOL
  3. HYDROXIQUINE [Concomitant]
  4. CLOPIDOGREL [Concomitant]
     Active Substance: CLOPIDOGREL BISULFATE
  5. LEVOTHYROXINE. [Concomitant]
     Active Substance: LEVOTHYROXINE
  6. REPATHA [Suspect]
     Active Substance: EVOLOCUMAB
     Indication: BLOOD CHOLESTEROL INCREASED

REACTIONS (9)
  - Diarrhoea [None]
  - Dehydration [None]
  - Hypotension [None]
  - Insomnia [None]
  - Pain in extremity [None]
  - Arthralgia [None]
  - Feeling abnormal [None]
  - Poor venous access [None]
  - Influenza like illness [None]

NARRATIVE: CASE EVENT DATE: 20210707
